FAERS Safety Report 9994768 (Version 1)
Quarter: 2014Q1

REPORT INFORMATION
  Report Type: Spontaneous
  Country: IN (occurrence: None)
  Receive Date: 20140306
  Receipt Date: 20140306
  Transmission Date: 20141002
  Serious: Yes (Life-Threatening, Hospitalization)
  Sender: FDA-Public Use
  Company Number: DEP_01920_2014

PATIENT
  Age: 19 Year
  Sex: Male

DRUGS (2)
  1. DICLOFENAC SODIUM [Suspect]
     Indication: PYREXIA
     Route: 030
     Dates: start: 200809, end: 200809
  2. DICLOFENAC SODIUM [Suspect]
     Indication: PAIN
     Route: 030
     Dates: start: 200809, end: 200809

REACTIONS (7)
  - Pain [None]
  - Pyrexia [None]
  - Gait disturbance [None]
  - Injection site abscess [None]
  - Clostridial infection [None]
  - Toxicity to various agents [None]
  - Wound [None]
